FAERS Safety Report 5112684-3 (Version None)
Quarter: 2006Q3

REPORT INFORMATION
  Report Type: 
  Country: None (occurrence: None)
  Receive Date: 20060922
  Receipt Date: 20060511
  Transmission Date: 20061208
  Serious: Yes (Other)
  Sender: FDA-Public Use
  Company Number: US-GLAXOSMITHKLINE-A0606097A

PATIENT
  Age: 52 Year
  Sex: Female

DRUGS (1)
  1. LAMICTAL [Suspect]
     Indication: BIPOLAR DISORDER
     Dosage: 50MG UNKNOWN
     Route: 048
     Dates: start: 20060401, end: 20060501

REACTIONS (14)
  - DISORIENTATION [None]
  - DYSGEUSIA [None]
  - FATIGUE [None]
  - HALLUCINATION [None]
  - HYPOAESTHESIA [None]
  - IMPAIRED WORK ABILITY [None]
  - INSOMNIA [None]
  - MANIA [None]
  - OBSESSIVE-COMPULSIVE DISORDER [None]
  - RASH [None]
  - SKIN REACTION [None]
  - SUICIDAL IDEATION [None]
  - TENSION [None]
  - TOOTH DISORDER [None]
